FAERS Safety Report 9122186 (Version 2)
Quarter: 2013Q2

REPORT INFORMATION
  Report Type: Spontaneous
  Country: SE (occurrence: SE)
  Receive Date: 20130227
  Receipt Date: 20130411
  Transmission Date: 20140414
  Serious: Yes (Hospitalization, Other)
  Sender: FDA-Public Use
  Company Number: SE-JNJFOC-20130212558

PATIENT
  Age: 53 Year
  Sex: Female

DRUGS (4)
  1. REMICADE [Suspect]
     Indication: ANKYLOSING SPONDYLITIS
     Dosage: THIRD INFUSION AFTER RESTARTING WAS ON 16-MAY-2012
     Route: 042
     Dates: start: 20120403, end: 20120516
  2. REMICADE [Suspect]
     Indication: ANKYLOSING SPONDYLITIS
     Route: 042
     Dates: start: 20051209, end: 201102
  3. SALAZOPYRIN [Concomitant]
     Route: 065
  4. SALAZOPYRIN [Concomitant]
     Route: 065
     Dates: start: 20051209

REACTIONS (2)
  - Adenocarcinoma [Unknown]
  - Pulmonary embolism [Unknown]
